FAERS Safety Report 20851221 (Version 1)
Quarter: 2022Q2

REPORT INFORMATION
  Report Type: Spontaneous
  Country: AU (occurrence: AU)
  Receive Date: 20220519
  Receipt Date: 20220519
  Transmission Date: 20220721
  Serious: Yes (Other)
  Sender: FDA-Public Use
  Company Number: AU-BoehringerIngelheim-2022-BI-171547

PATIENT
  Age: 5 Year
  Sex: Female

DRUGS (1)
  1. CATAPRES [Suspect]
     Active Substance: CLONIDINE HYDROCHLORIDE
     Indication: Product used for unknown indication

REACTIONS (6)
  - Bradycardia [Unknown]
  - Hypotension [Unknown]
  - Miosis [Unknown]
  - Respiratory depression [Unknown]
  - Somnolence [Unknown]
  - Accidental exposure to product by child [Unknown]
